FAERS Safety Report 7929018-9 (Version None)
Quarter: 2011Q4

REPORT INFORMATION
  Report Type: 
  Country: None (occurrence: None)
  Receive Date: 20111118
  Receipt Date: 20111115
  Transmission Date: 20120403
  Serious: Yes (Hospitalization)
  Sender: FDA-Public Use
  Company Number: US-ROCHE-1000737

PATIENT
  Sex: Male
  Weight: 77.1 kg

DRUGS (1)
  1. VEMURAFENIB [Suspect]
     Indication: MALIGNANT MELANOMA
     Dosage: LAST DOSE PRIOR TO SAE: 24 SEP 2011
     Dates: start: 20110830, end: 20110924

REACTIONS (2)
  - DYSPNOEA [None]
  - CARDIAC FAILURE CONGESTIVE [None]
